FAERS Safety Report 6491844-3 (Version None)
Quarter: 2009Q4

REPORT INFORMATION
  Report Type: 
  Country: None (occurrence: None)
  Receive Date: 20091125
  Receipt Date: 20090518
  Transmission Date: 20100525
  Serious: Yes (Hospitalization)
  Sender: FDA-Public Use
  Company Number: 2009BH008750

PATIENT
  Age: 63 Year
  Sex: Male
  Weight: 101.3 kg

DRUGS (2)
  1. DIANEAL [Suspect]
     Indication: PERITONEAL DIALYSIS
     Dosage: 14 L; EVERY DAY; IP
     Dates: end: 20090520
  2. DIANEAL [Suspect]
     Indication: PERITONEAL DIALYSIS
     Dosage: 2 L;EVERY DAY; IP
     Dates: end: 20090520

REACTIONS (1)
  - PERITONITIS BACTERIAL [None]
